FAERS Safety Report 6996661-3 (Version None)
Quarter: 2010Q3

REPORT INFORMATION
  Report Type: 
  Country: None (occurrence: None)
  Receive Date: 20100918
  Receipt Date: 20090622
  Transmission Date: 20110219
  Serious: No
  Sender: FDA-Public Use
  Company Number: US-WYE-H09503009

PATIENT
  Sex: Female
  Weight: 81.72 kg

DRUGS (7)
  1. EFFEXOR XR [Suspect]
     Indication: DEPRESSION
     Route: 048
     Dates: start: 20040101, end: 20090420
  2. EFFEXOR XR [Suspect]
     Route: 048
     Dates: start: 20090421, end: 20090423
  3. ADDERALL 10 [Concomitant]
  4. CLONIDINE [Concomitant]
  5. SUBOXONE [Concomitant]
  6. PRISTIQ [Suspect]
     Indication: ANXIETY
     Route: 048
     Dates: start: 20090507
  7. TOPROL-XL [Concomitant]

REACTIONS (6)
  - DRUG WITHDRAWAL SYNDROME [None]
  - INSOMNIA [None]
  - IRRITABILITY [None]
  - MALAISE [None]
  - NAUSEA [None]
  - PERSONALITY CHANGE [None]
